FAERS Safety Report 4674314-4 (Version None)
Quarter: 2005Q2

REPORT INFORMATION
  Report Type: 
  Country: None (occurrence: None)
  Receive Date: 20050526
  Receipt Date: 20050511
  Transmission Date: 20051028
  Serious: Yes (Life-Threatening, Other)
  Sender: FDA-Public Use
  Company Number: 200514248GDDC

PATIENT
  Age: 75 Year
  Sex: Male

DRUGS (5)
  1. CLEXANE [Suspect]
     Indication: ACUTE MYOCARDIAL INFARCTION
     Route: 058
     Dates: start: 20040401, end: 20040403
  2. HEPARIN [Suspect]
     Indication: ACUTE MYOCARDIAL INFARCTION
     Route: 051
     Dates: start: 20040401, end: 20040403
  3. RETEPLASE [Suspect]
     Indication: ACUTE MYOCARDIAL INFARCTION
     Dosage: DOSE UNIT: UNITS
     Route: 042
     Dates: start: 20040401, end: 20040401
  4. ZYLOPRIM [Concomitant]
     Route: 048
  5. ASPIRIN [Concomitant]
     Route: 048
     Dates: start: 20040401

REACTIONS (2)
  - BLOOD PRESSURE DECREASED [None]
  - BRADYCARDIA [None]
